FAERS Safety Report 19436253 (Version 1)
Quarter: 2021Q2

REPORT INFORMATION
  Report Type: Report from Study
  Country: DE (occurrence: DE)
  Receive Date: 20210618
  Receipt Date: 20210618
  Transmission Date: 20210717
  Serious: Yes (Other)
  Sender: FDA-Public Use
  Company Number: NVSC2021DE129671

PATIENT

DRUGS (1)
  1. METFORMIN [Suspect]
     Active Substance: METFORMIN HYDROCHLORIDE
     Indication: PRODUCT USED FOR UNKNOWN INDICATION
     Dosage: UNK
     Route: 065

REACTIONS (16)
  - Dysuria [Unknown]
  - Thirst [Unknown]
  - Memory impairment [Unknown]
  - Asthenia [Unknown]
  - Myocardial infarction [Unknown]
  - Blindness [Unknown]
  - Appetite disorder [Unknown]
  - Blood glucose abnormal [Unknown]
  - Sensory loss [Unknown]
  - Lethargy [Unknown]
  - Hypoglycaemia [Unknown]
  - Diabetic retinopathy [Unknown]
  - Hypoaesthesia [Unknown]
  - Cerebrovascular accident [Unknown]
  - Fatigue [Unknown]
  - Glycosylated haemoglobin increased [Unknown]
